FAERS Safety Report 7449729-1 (Version None)
Quarter: 2011Q2

REPORT INFORMATION
  Report Type: 
  Country: None (occurrence: None)
  Receive Date: 20110502
  Receipt Date: 20110418
  Transmission Date: 20111010
  Serious: Yes (Other)
  Sender: FDA-Public Use
  Company Number: GR-JNJFOC-20110307454

PATIENT
  Sex: Female
  Weight: 48 kg

DRUGS (3)
  1. RIFAMPIN AND ISONIAZID [Concomitant]
  2. REMICADE [Suspect]
     Indication: PSORIASIS
     Route: 042
  3. DIANICOTYL [Concomitant]

REACTIONS (4)
  - TUBERCULIN TEST POSITIVE [None]
  - PYREXIA [None]
  - FATIGUE [None]
  - ADVERSE EVENT [None]
